FAERS Safety Report 25641312 (Version 1)
Quarter: 2025Q3

REPORT INFORMATION
  Report Type: Spontaneous
  Country: IN (occurrence: IN)
  Receive Date: 20250804
  Receipt Date: 20250804
  Transmission Date: 20251021
  Serious: Yes (Hospitalization)
  Sender: MYLAN
  Company Number: IN-MYLANLABS-2025M1065737

PATIENT
  Age: 42 Year
  Sex: Female

DRUGS (8)
  1. TRANEXAMIC ACID [Suspect]
     Active Substance: TRANEXAMIC ACID
     Indication: Haemorrhage prophylaxis
     Dates: start: 20250406, end: 20250406
  2. TRANEXAMIC ACID [Suspect]
     Active Substance: TRANEXAMIC ACID
     Dates: start: 20250406, end: 20250406
  3. TRANEXAMIC ACID [Suspect]
     Active Substance: TRANEXAMIC ACID
     Route: 042
     Dates: start: 20250406, end: 20250406
  4. TRANEXAMIC ACID [Suspect]
     Active Substance: TRANEXAMIC ACID
     Route: 042
     Dates: start: 20250406, end: 20250406
  5. TRANEXAMIC ACID [Suspect]
     Active Substance: TRANEXAMIC ACID
     Dosage: 500 MILLIGRAM, Q8H
     Dates: start: 20250406, end: 2025
  6. TRANEXAMIC ACID [Suspect]
     Active Substance: TRANEXAMIC ACID
     Dosage: 500 MILLIGRAM, Q8H
     Dates: start: 20250406, end: 2025
  7. TRANEXAMIC ACID [Suspect]
     Active Substance: TRANEXAMIC ACID
     Dosage: 500 MILLIGRAM, Q8H
     Route: 042
     Dates: start: 20250406, end: 2025
  8. TRANEXAMIC ACID [Suspect]
     Active Substance: TRANEXAMIC ACID
     Dosage: 500 MILLIGRAM, Q8H
     Route: 042
     Dates: start: 20250406, end: 2025

REACTIONS (5)
  - Myoclonus [Recovering/Resolving]
  - Delirium [Recovering/Resolving]
  - Hallucinations, mixed [Recovering/Resolving]
  - Agitation [Recovering/Resolving]
  - Off label use [Unknown]

NARRATIVE: CASE EVENT DATE: 20250406
